FAERS Safety Report 8011141-4 (Version None)
Quarter: 2011Q4

REPORT INFORMATION
  Report Type: 
  Country: None (occurrence: None)
  Receive Date: 20111228
  Receipt Date: 20111213
  Transmission Date: 20120403
  Serious: Yes (Other)
  Sender: FDA-Public Use
  Company Number: DE-ROCHE-1023786

PATIENT

DRUGS (2)
  1. LUCENTIS [Suspect]
     Indication: AGE-RELATED MACULAR DEGENERATION
     Route: 050
  2. LUCENTIS [Suspect]
     Route: 050

REACTIONS (5)
  - LENS DISORDER [None]
  - RETINAL HAEMORRHAGE [None]
  - DETACHMENT OF MACULAR RETINAL PIGMENT EPITHELIUM [None]
  - MACULOPATHY [None]
  - VISUAL ACUITY REDUCED [None]
